FAERS Safety Report 8962413 (Version 2)
Quarter: 2013Q1

REPORT INFORMATION
  Report Type: Spontaneous
  Country: CN (occurrence: CN)
  Receive Date: 20121213
  Receipt Date: 20130111
  Transmission Date: 20140127
  Serious: Yes (Other)
  Sender: FDA-Public Use
  Company Number: CN-BRISTOL-MYERS SQUIBB COMPANY-17189127

PATIENT
  Age: 49 Year
  Sex: Female

DRUGS (4)
  1. ERBITUX SOLN FOR INF [Suspect]
     Indication: RECTAL CANCER
     Dosage: ONGOING
     Route: 041
     Dates: start: 201208, end: 201211
  2. IRINOTECAN [Concomitant]
     Indication: RECTAL CANCER
     Route: 041
     Dates: start: 201208, end: 201210
  3. 5-FLUOROURACIL [Concomitant]
     Indication: RECTAL CANCER
     Route: 041
     Dates: start: 201208, end: 201210
  4. FOLINIC ACID [Concomitant]
     Indication: RECTAL CANCER
     Route: 041
     Dates: start: 201208, end: 201210

REACTIONS (2)
  - Haematochezia [Unknown]
  - Gingival bleeding [Recovered/Resolved]
